FAERS Safety Report 10676635 (Version 1)
Quarter: 2014Q4

REPORT INFORMATION
  Report Type: Spontaneous
  Country: US (occurrence: None)
  Receive Date: 20141223
  Receipt Date: 20141223
  Transmission Date: 20150529
  Serious: Yes (Disabling)
  Sender: FDA-Public Use
  Company Number: None

PATIENT
  Age: 38 Year
  Sex: Male
  Weight: 102.06 kg

DRUGS (1)
  1. TAMOXIFEN [Suspect]
     Active Substance: TAMOXIFEN
     Indication: BLOOD OESTROGEN ABNORMAL
     Dosage: 1 PILL
     Route: 048

REACTIONS (1)
  - Testicular atrophy [None]

NARRATIVE: CASE EVENT DATE: 20141222
